FAERS Safety Report 7501919-5 (Version None)
Quarter: 2011Q2

REPORT INFORMATION
  Report Type: 
  Country: None (occurrence: None)
  Receive Date: 20110525
  Receipt Date: 20110520
  Transmission Date: 20111010
  Serious: No
  Sender: FDA-Public Use
  Company Number: US-PFIZER INC-2011110007

PATIENT
  Sex: Female
  Weight: 58.957 kg

DRUGS (1)
  1. EFFEXOR XR [Suspect]
     Indication: DEPRESSION
     Dosage: 75 MG, DAILY
     Route: 048
     Dates: start: 20110412

REACTIONS (4)
  - ANORGASMIA [None]
  - CONSTIPATION [None]
  - HEADACHE [None]
  - WEIGHT INCREASED [None]
